FAERS Safety Report 7037138-9 (Version None)
Quarter: 2010Q4

REPORT INFORMATION
  Report Type: 
  Country: None (occurrence: None)
  Receive Date: 20101011
  Receipt Date: 20100927
  Transmission Date: 20110411
  Serious: Yes (Hospitalization, Other)
  Sender: FDA-Public Use
  Company Number: US-ELI_LILLY_AND_COMPANY-US201003002414

PATIENT
  Sex: Female

DRUGS (19)
  1. FORTEO [Suspect]
     Indication: OSTEOPOROSIS
     Dosage: 20 UG, DAILY (1/D)
     Dates: end: 20100201
  2. FORTEO [Suspect]
     Dosage: 20 UG, DAILY (1/D)
  3. LASIX [Concomitant]
  4. MORPHINE SULFATE [Concomitant]
  5. CLONAZEPAM [Concomitant]
  6. LORAZEPAM [Concomitant]
  7. ADVAIR DISKUS 100/50 [Concomitant]
  8. CYMBALTA [Concomitant]
  9. PROPRANOLOL [Concomitant]
  10. ASPIRIN [Concomitant]
  11. VITAMIN D [Concomitant]
  12. VITAMIN A [Concomitant]
  13. CALCIUM CARBONATE [Concomitant]
  14. FLEXERIL [Concomitant]
  15. TRAZODONE HCL [Concomitant]
  16. ABILIFY [Concomitant]
  17. NEXIUM [Concomitant]
  18. SIMVASTATIN [Concomitant]
  19. THEOPHYLLINE [Concomitant]

REACTIONS (11)
  - ARTHROPATHY [None]
  - CRYING [None]
  - DISTURBANCE IN ATTENTION [None]
  - FALL [None]
  - HIP ARTHROPLASTY [None]
  - HIP FRACTURE [None]
  - INJECTION SITE HAEMORRHAGE [None]
  - INJECTION SITE PAIN [None]
  - MOBILITY DECREASED [None]
  - PAIN [None]
  - WOUND INFECTION STAPHYLOCOCCAL [None]
